FAERS Safety Report 10018817 (Version 1)
Quarter: 2014Q1

REPORT INFORMATION
  Report Type: Spontaneous
  Country: JP (occurrence: JP)
  Receive Date: 20140318
  Receipt Date: 20140318
  Transmission Date: 20141002
  Serious: Yes (Other)
  Sender: FDA-Public Use
  Company Number: JP-GLAXOSMITHKLINE-B0975673A

PATIENT
  Age: 80 Year
  Sex: Female

DRUGS (8)
  1. ARZERRA [Suspect]
     Indication: CHRONIC LYMPHOCYTIC LEUKAEMIA
     Dosage: 300MG PER DAY
     Route: 042
     Dates: start: 20140305, end: 20140305
  2. ARZERRA [Suspect]
     Indication: CHRONIC LYMPHOCYTIC LEUKAEMIA
     Route: 042
     Dates: start: 20140312, end: 20140312
  3. METHYLPREDNISOLONE [Concomitant]
     Indication: PREMEDICATION
     Dosage: 80MG PER DAY
     Route: 065
     Dates: start: 20140305, end: 20140305
  4. METHYLPREDNISOLONE [Concomitant]
     Indication: PREMEDICATION
     Dosage: 80MG PER DAY
     Route: 065
     Dates: start: 20140312, end: 20140312
  5. ACETAMINOPHEN [Concomitant]
     Indication: PREMEDICATION
     Dosage: 500MG PER DAY
     Route: 065
     Dates: start: 20140305, end: 20140305
  6. ACETAMINOPHEN [Concomitant]
     Indication: PREMEDICATION
     Dosage: 500MG PER DAY
     Route: 065
     Dates: start: 20140312, end: 20140312
  7. RESTAMIN [Concomitant]
     Indication: PREMEDICATION
     Dosage: 30MG PER DAY
     Route: 048
     Dates: start: 20140305, end: 20140305
  8. RESTAMIN [Concomitant]
     Indication: PREMEDICATION
     Dosage: 30MG PER DAY
     Route: 048
     Dates: start: 20140312, end: 20140312

REACTIONS (3)
  - Blood pressure decreased [Recovered/Resolved]
  - Pyrexia [Recovered/Resolved]
  - Oedema [Recovering/Resolving]
